FAERS Safety Report 9091439 (Version 1)
Quarter: 2013Q1

REPORT INFORMATION
  Report Type: Report from Study
  Country: US (occurrence: US)
  Receive Date: 20130201
  Receipt Date: 20130201
  Transmission Date: 20140127
  Serious: No
  Sender: FDA-Public Use
  Company Number: US-ABBOTT-12P-163-1022745-00

PATIENT
  Age: 42 Year
  Sex: Male
  Weight: 118.04 kg

DRUGS (5)
  1. HUMIRA [Suspect]
     Indication: PSORIASIS
     Dosage: 80
     Dates: start: 20121120, end: 20121120
  2. HUMIRA [Suspect]
     Dosage: 40
     Dates: start: 20121204
  3. UNKNOWN CHOLESTEROL MEDICATION (NON-ABBOTT) [Concomitant]
     Indication: BLOOD CHOLESTEROL INCREASED
  4. ZOLOFT [Concomitant]
     Indication: IRRITABILITY
  5. VYVANSE [Concomitant]
     Indication: DISTURBANCE IN ATTENTION

REACTIONS (3)
  - Headache [Not Recovered/Not Resolved]
  - Laryngitis [Recovering/Resolving]
  - Headache [Recovering/Resolving]
